FAERS Safety Report 12671044 (Version 2)
Quarter: 2016Q3

REPORT INFORMATION
  Report Type: Spontaneous
  Country: US (occurrence: US)
  Receive Date: 20160822
  Receipt Date: 20160930
  Transmission Date: 20161109
  Serious: No
  Sender: FDA-Public Use
  Company Number: US-ASTRAZENECA-2016SE89435

PATIENT
  Age: 84 Year
  Sex: Female

DRUGS (7)
  1. LEVOTHYROXINE. [Concomitant]
     Active Substance: LEVOTHYROXINE
     Dosage: UNK
  2. PREDNISONE. [Concomitant]
     Active Substance: PREDNISONE
     Dosage: 10 MG, 1X/DAY
  3. NEXIUM 24HR [Suspect]
     Active Substance: ESOMEPRAZOLE MAGNESIUM
     Indication: GASTROOESOPHAGEAL REFLUX DISEASE
     Dosage: ONE TABLET IN MORNING AND ONE TABLET IN EVENING
     Route: 048
  4. TAZTIA XT [Concomitant]
     Active Substance: DILTIAZEM HYDROCHLORIDE
     Dosage: 180 MG, 1X/DAY
  5. NEXIUM 24HR [Suspect]
     Active Substance: ESOMEPRAZOLE MAGNESIUM
     Indication: GASTROOESOPHAGEAL REFLUX DISEASE
     Dosage: 20 MG, 2X/DAY
     Route: 048
     Dates: start: 201606
  6. LORAZEPAM. [Concomitant]
     Active Substance: LORAZEPAM
     Dosage: 25, 1X/DAY
  7. MUCINEX [Concomitant]
     Active Substance: GUAIFENESIN
     Dosage: UNK

REACTIONS (2)
  - Dyspepsia [Recovered/Resolved]
  - Intentional product misuse [Unknown]
